FAERS Safety Report 17911382 (Version 1)
Quarter: 2020Q2

REPORT INFORMATION
  Report Type: Spontaneous
  Country: US (occurrence: US)
  Receive Date: 20200617
  Receipt Date: 20200617
  Transmission Date: 20200714
  Serious: Yes (Disabling)
  Sender: FDA-Public Use
  Company Number: None

PATIENT
  Age: 33 Year
  Sex: Male
  Weight: 85.5 kg

DRUGS (4)
  1. ABILIFY MAINTENA [Suspect]
     Active Substance: ARIPIPRAZOLE
     Indication: BIPOLAR I DISORDER
  2. FINASTERIDE. [Concomitant]
     Active Substance: FINASTERIDE
  3. GABAPENTIN. [Concomitant]
     Active Substance: GABAPENTIN
  4. DIVALPROEX SODIUM ER [Concomitant]
     Active Substance: DIVALPROEX SODIUM

REACTIONS (3)
  - Restlessness [None]
  - Abnormal behaviour [None]
  - Sedation [None]

NARRATIVE: CASE EVENT DATE: 20200606
